FAERS Safety Report 5320571-0 (Version None)
Quarter: 2007Q2

REPORT INFORMATION
  Report Type: 
  Country: None (occurrence: None)
  Receive Date: 20070509
  Receipt Date: 20070430
  Transmission Date: 20071010
  Serious: Yes (Other)
  Sender: FDA-Public Use
  Company Number: AU-PFIZER INC-2007035732

PATIENT
  Sex: Female

DRUGS (4)
  1. LIPITOR [Suspect]
  2. PANTOPRAZOLE SODIUM [Concomitant]
  3. NOTEN [Concomitant]
  4. PREMARIN [Concomitant]

REACTIONS (8)
  - CHOKING SENSATION [None]
  - CHRONIC FATIGUE SYNDROME [None]
  - CONSTIPATION [None]
  - DIZZINESS [None]
  - GAIT DISTURBANCE [None]
  - HEADACHE [None]
  - MYALGIA [None]
  - NAUSEA [None]
